FAERS Safety Report 11932553 (Version 1)
Quarter: 2016Q1

REPORT INFORMATION
  Report Type: Spontaneous
  Country: JP (occurrence: JP)
  Receive Date: 20160120
  Receipt Date: 20160120
  Transmission Date: 20160526
  Serious: Yes (Other)
  Sender: FDA-Public Use
  Company Number: JP-PFIZER INC-2016028016

PATIENT
  Age: 67 Year
  Sex: Male

DRUGS (8)
  1. ZALUTIA [Concomitant]
     Active Substance: TADALAFIL
     Dosage: UNK
     Route: 048
     Dates: end: 201508
  2. WYPAX [Concomitant]
     Active Substance: LORAZEPAM
     Dosage: UNK UNK, AS NEEDED
     Route: 048
     Dates: end: 201508
  3. PARIET [Concomitant]
     Active Substance: RABEPRAZOLE SODIUM
     Dosage: UNK
     Route: 048
     Dates: end: 201508
  4. AZEPTIN [Concomitant]
     Dosage: UNK
     Route: 048
     Dates: end: 201508
  5. TERNELIN [Concomitant]
     Active Substance: TIZANIDINE
     Dosage: UNK
     Route: 048
     Dates: end: 201508
  6. AMLODIN [Suspect]
     Active Substance: AMLODIPINE BESYLATE
     Dosage: 5 MG, DAILY
     Route: 048
     Dates: end: 201508
  7. BLOPRESS [Concomitant]
     Active Substance: CANDESARTAN CILEXETIL
     Dosage: UNK
     Route: 048
     Dates: end: 201508
  8. BEZATOL SR [Concomitant]
     Active Substance: BEZAFIBRATE
     Dosage: UNK
     Route: 048
     Dates: end: 201508

REACTIONS (3)
  - Renal neoplasm [Not Recovered/Not Resolved]
  - Neoplasm [Unknown]
  - Malaise [Unknown]

NARRATIVE: CASE EVENT DATE: 201501
